FAERS Safety Report 9820613 (Version 1)
Quarter: 2013Q4

REPORT INFORMATION
  Report Type: Spontaneous
  Country: US (occurrence: None)
  Receive Date: 20131025
  Receipt Date: 20131025
  Transmission Date: 20140711
  Serious: No
  Sender: FDA-Public Use
  Company Number: AP356-00039-SPO-US

PATIENT
  Age: 60 Year
  Sex: Female
  Weight: 122 kg

DRUGS (1)
  1. BELVIQ [Suspect]
     Indication: WEIGHT CONTROL
     Dosage: 20 MG, 2 IN 1 D, ORAL
     Route: 048
     Dates: start: 20130713, end: 20130727

REACTIONS (1)
  - Rash maculo-papular [None]
